FAERS Safety Report 7509956-1 (Version None)
Quarter: 2011Q2

REPORT INFORMATION
  Report Type: 
  Country: None (occurrence: None)
  Receive Date: 20110527
  Receipt Date: 20110516
  Transmission Date: 20111010
  Serious: Yes (Other)
  Sender: FDA-Public Use
  Company Number: DE-MYLANLABS-2011S1010096

PATIENT
  Sex: Female

DRUGS (1)
  1. DOPADURA C [Suspect]
     Indication: PRODUCT USED FOR UNKNOWN INDICATION
     Route: 048

REACTIONS (17)
  - FATIGUE [None]
  - CONSTIPATION [None]
  - FLUSHING [None]
  - DIZZINESS [None]
  - HYPERHIDROSIS [None]
  - INSOMNIA [None]
  - CHEST PAIN [None]
  - GASTROINTESTINAL PAIN [None]
  - WEIGHT INCREASED [None]
  - GAIT DISTURBANCE [None]
  - DYSGEUSIA [None]
  - FLATULENCE [None]
  - DRUG INEFFECTIVE [None]
  - TONGUE DISCOLOURATION [None]
  - EPISTAXIS [None]
  - HEADACHE [None]
  - NAUSEA [None]
